FAERS Safety Report 21273714 (Version 1)
Quarter: 2022Q3

REPORT INFORMATION
  Report Type: Spontaneous
  Country: US (occurrence: None)
  Receive Date: 20220830
  Receipt Date: 20220830
  Transmission Date: 20221027
  Serious: Yes (Hospitalization)
  Sender: FDA-Public Use
  Company Number: None

PATIENT
  Age: 70 Year
  Sex: Female
  Weight: 87.3 kg

DRUGS (1)
  1. BREYANZI [Suspect]
     Active Substance: LISOCABTAGENE MARALEUCEL
     Dosage: FREQUENCY : ONCE;?
     Route: 042
     Dates: start: 20220517, end: 20220517

REACTIONS (2)
  - Cytokine release syndrome [None]
  - Hypotension [None]

NARRATIVE: CASE EVENT DATE: 20220520
